FAERS Safety Report 14385137 (Version 1)
Quarter: 2018Q1

REPORT INFORMATION
  Report Type: Spontaneous
  Country: US (occurrence: US)
  Receive Date: 20180115
  Receipt Date: 20180115
  Transmission Date: 20180509
  Serious: Yes (Other)
  Sender: FDA-Public Use
  Company Number: US-LPDUSPRD-20180013

PATIENT
  Age: 23 Year
  Sex: Female

DRUGS (6)
  1. SUCCYLCHOLINE [Concomitant]
     Dosage: UNKNOWN
     Route: 065
  2. CLONIDINE HYDROCHLORIDE INJECTION, USP (0730-01) [Suspect]
     Active Substance: CLONIDINE HYDROCHLORIDE
     Dosage: 50 MCG
     Route: 065
  3. BUPIVACAINE 0.25% WITH 1:200,000 EPINEPHRINE [Suspect]
     Active Substance: BUPIVACAINE\EPINEPHRINE
     Dosage: UNKNOWN
     Route: 065
  4. PROPOFOL. [Concomitant]
     Active Substance: PROPOFOL
     Dosage: UNKNOWN
     Route: 042
  5. REMIFENTANYL [Concomitant]
     Active Substance: REMIFENTANIL
     Dosage: UNKNOWN
     Route: 042
  6. DESMOPRESSIN [Concomitant]
     Active Substance: DESMOPRESSIN
     Dosage: UNKNOWN
     Route: 042

REACTIONS (2)
  - Sensation of foreign body [Unknown]
  - Stridor [Unknown]
